FAERS Safety Report 6096524-4 (Version None)
Quarter: 2009Q1

REPORT INFORMATION
  Report Type: 
  Country: None (occurrence: None)
  Receive Date: 20090227
  Receipt Date: 20090217
  Transmission Date: 20090719
  Serious: Yes (Hospitalization)
  Sender: FDA-Public Use
  Company Number: CA-WYE-H08294009

PATIENT
  Age: 81 Year
  Sex: Male

DRUGS (8)
  1. PANTOPRAZOLE SODIUM [Suspect]
     Indication: GASTRITIS
     Route: 048
     Dates: start: 20071128, end: 20080117
  2. ALTACE [Concomitant]
     Dosage: 10 MG
     Dates: end: 20080110
  3. XALATAN [Concomitant]
     Dosage: 1 DF
  4. LOVAZA [Concomitant]
     Dosage: UNKNOWN
  5. VITAMINS WITH MINERALS [Concomitant]
     Dosage: UNKNOWN
  6. FERROUS SULFATE TAB [Concomitant]
     Dosage: 300 MG
  7. HYDROCHLOROTHIAZIDE [Concomitant]
     Dosage: 12.5 MG
  8. BETOPTIC [Concomitant]
     Dosage: 1 DF ONCE OR TWICE DAILY

REACTIONS (3)
  - PYREXIA [None]
  - RENAL FAILURE ACUTE [None]
  - WEIGHT DECREASED [None]
